FAERS Safety Report 7729295-3 (Version None)
Quarter: 2011Q3

REPORT INFORMATION
  Report Type: 
  Country: None (occurrence: None)
  Receive Date: 20110831
  Receipt Date: 20110831
  Transmission Date: 20111222
  Serious: Yes (Hospitalization)
  Sender: FDA-Public Use
  Company Number: None

PATIENT
  Sex: Male
  Weight: 81.5 kg

DRUGS (4)
  1. DOXORUBICIN HYDROCHLORIDE [Suspect]
     Dosage: 50 MG
  2. VINCRISTINE SULFATE [Suspect]
     Dosage: 2 MG
  3. METHOTREXATE [Suspect]
     Dosage: 15 MG
  4. DEXAMETHASONE [Suspect]
     Dosage: 10 MG

REACTIONS (1)
  - BLOOD CULTURE POSITIVE [None]
